FAERS Safety Report 9402056 (Version 2)
Quarter: 2013Q3

REPORT INFORMATION
  Report Type: Report from Study
  Country: US (occurrence: US)
  Receive Date: 20130716
  Receipt Date: 20130815
  Transmission Date: 20140515
  Serious: No
  Sender: FDA-Public Use
  Company Number: PHEH2013US014790

PATIENT
  Age: 43 Year
  Sex: Male
  Weight: 72.56 kg

DRUGS (2)
  1. TASIGNA [Suspect]
     Indication: CHRONIC MYELOID LEUKAEMIA
     Dosage: 300 MG, BID
     Route: 048
  2. PRILOSEC [Concomitant]
     Dosage: 20 MG, UNK

REACTIONS (4)
  - Dysphonia [Unknown]
  - Fatigue [Unknown]
  - Weight decreased [Unknown]
  - White blood cell count decreased [Unknown]
